FAERS Safety Report 19205809 (Version 1)
Quarter: 2021Q2

REPORT INFORMATION
  Report Type: Spontaneous
  Country: US (occurrence: US)
  Receive Date: 20210503
  Receipt Date: 20210503
  Transmission Date: 20210717
  Serious: No
  Sender: FDA-Public Use
  Company Number: US-FARMAPROD-202103-0390

PATIENT
  Sex: Female

DRUGS (20)
  1. ZENOPTIQ [Concomitant]
     Dosage: WITH PUMP
  2. BIOTIN [Concomitant]
     Active Substance: BIOTIN
  3. MOXIFLOXACIN. [Concomitant]
     Active Substance: MOXIFLOXACIN
  4. VALACYCLOVIR [Concomitant]
     Active Substance: VALACYCLOVIR HYDROCHLORIDE
  5. PYRIDOXINE HCL [Concomitant]
     Active Substance: PYRIDOXINE HYDROCHLORIDE
  6. DOXYCYCLINE HYCLATE. [Concomitant]
     Active Substance: DOXYCYCLINE HYCLATE
  7. ZINC. [Concomitant]
     Active Substance: ZINC
  8. ERYTHROMYCIN. [Concomitant]
     Active Substance: ERYTHROMYCIN
  9. MAGNESIUM [Concomitant]
     Active Substance: MAGNESIUM
  10. PREDNISOLONE/NEPAFENAC [Concomitant]
  11. SIMBRINZA [Concomitant]
     Active Substance: BRIMONIDINE TARTRATE\BRINZOLAMIDE
     Dosage: 1 %?0.2 % DROPS SUSPENSION
  12. CERAVE HEALING [Concomitant]
     Active Substance: PETROLATUM
  13. CLOBETASOL EMOLLIENT [Concomitant]
  14. VITAMIN C [Concomitant]
     Active Substance: ASCORBIC ACID
  15. METHOTREXATE. [Concomitant]
     Active Substance: METHOTREXATE
  16. VITAMIN D?400 [Concomitant]
  17. VITAMIN B12 [Concomitant]
     Active Substance: CYANOCOBALAMIN
  18. TRIAMCINOLONE ACETONIDE. [Concomitant]
     Active Substance: TRIAMCINOLONE ACETONIDE
  19. SINGULAIR [Concomitant]
     Active Substance: MONTELUKAST SODIUM
  20. OXERVATE [Suspect]
     Active Substance: CENEGERMIN-BKBJ
     Indication: NEUROTROPHIC KERATOPATHY
     Route: 047
     Dates: start: 20210308

REACTIONS (1)
  - Eye irritation [Unknown]
